FAERS Safety Report 9548109 (Version 1)
Quarter: 2013Q3

REPORT INFORMATION
  Report Type: Spontaneous
  Country: DE (occurrence: None)
  Receive Date: 20130920
  Receipt Date: 20130920
  Transmission Date: 20140515
  Serious: Yes (Hospitalization)
  Sender: FDA-Public Use
  Company Number: 151281

PATIENT
  Age: 21 Year
  Sex: Male

DRUGS (2)
  1. IDARUBICIN HCL [Suspect]
     Indication: ACUTE MYELOID LEUKAEMIA
     Dosage: 78MG ABS.
  2. CYTARABINE [Suspect]
     Indication: ACUTE MYELOID LEUKAEMIA
     Dosage: 17.6MG ABS

REACTIONS (3)
  - Cardiac failure acute [None]
  - Febrile neutropenia [None]
  - Sepsis [None]
